FAERS Safety Report 4354827-5 (Version None)
Quarter: 2004Q2

REPORT INFORMATION
  Report Type: 
  Country: None (occurrence: None)
  Receive Date: 20040507
  Receipt Date: 20040430
  Transmission Date: 20050107
  Serious: Yes (Hospitalization)
  Sender: FDA-Public Use
  Company Number: JP-BRISTOL-MYERS SQUIBB COMPANY-12575106

PATIENT
  Age: 27 Year
  Sex: Female

DRUGS (4)
  1. BRIPLATIN [Suspect]
     Indication: LYMPHOMA
     Dosage: THERAPY DATES: 09-FEB TO 23-APR-2004
     Route: 042
     Dates: start: 20040423, end: 20040423
  2. ETOPOSIDE [Suspect]
     Indication: LYMPHOMA
  3. ARA-C [Suspect]
     Indication: LYMPHOMA
  4. SOLU-MEDROL [Suspect]
     Indication: LYMPHOMA

REACTIONS (1)
  - MYOCARDIAL INFARCTION [None]
